FAERS Safety Report 5959968-4 (Version None)
Quarter: 2008Q4

REPORT INFORMATION
  Report Type: 
  Country: None (occurrence: None)
  Receive Date: 20081120
  Receipt Date: 20081112
  Transmission Date: 20090506
  Serious: Yes (Other)
  Sender: FDA-Public Use
  Company Number: JP-MERCK-0810USA00581

PATIENT
  Age: 73 Year
  Sex: Female
  Weight: 53 kg

DRUGS (6)
  1. STROMECTOL [Suspect]
     Indication: ACARODERMATITIS
     Route: 065
     Dates: start: 20080901, end: 20080901
  2. STROMECTOL [Suspect]
     Route: 065
     Dates: start: 20080909, end: 20080909
  3. ELENTAL [Concomitant]
     Indication: ENTERAL NUTRITION
     Route: 065
     Dates: start: 20080810, end: 20080924
  4. HYDANTOL [Concomitant]
     Indication: CONVULSION
     Route: 065
     Dates: start: 20080818
  5. [THERAPY UNSPECIFIED] [Concomitant]
     Indication: DECUBITUS ULCER
     Route: 061
     Dates: start: 20080901, end: 20080923
  6. [THERAPY UNSPECIFIED] [Concomitant]
     Indication: ACARODERMATITIS
     Route: 061
     Dates: start: 20080901, end: 20080901

REACTIONS (2)
  - BLOOD PRESSURE INCREASED [None]
  - INCORRECT ROUTE OF DRUG ADMINISTRATION [None]
